FAERS Safety Report 19945924 (Version 1)
Quarter: 2021Q4

REPORT INFORMATION
  Report Type: Report from Study
  Country: DE (occurrence: DE)
  Receive Date: 20211012
  Receipt Date: 20211012
  Transmission Date: 20220303
  Serious: Yes (Other)
  Sender: FDA-Public Use
  Company Number: DE-CELLTRION HEALTHCARE HUNGARY KFT-2020DE029414

PATIENT

DRUGS (8)
  1. ACYCLOVIR [Suspect]
     Active Substance: ACYCLOVIR
     Indication: Product used for unknown indication
     Dosage: UNK
  2. TRUXIMA [Suspect]
     Active Substance: RITUXIMAB-ABBS
     Indication: Marginal zone lymphoma
     Dosage: 375 MILLIGRAM/SQ. METER, CYCLE (ON DAY 1 OF EVERY CYCLE)
     Route: 042
     Dates: start: 20200820
  3. TRUXIMA [Suspect]
     Active Substance: RITUXIMAB-ABBS
     Dosage: 577.5 MILLIGRAM, Q28D (375MG/SQ MTR), LAST DOSE PRIOR EVENT, EVERY 28 DAYS
     Route: 042
     Dates: start: 20200917, end: 20200917
  4. TRUXIMA [Suspect]
     Active Substance: RITUXIMAB-ABBS
     Dosage: 375 MILLIGRAM/SQ. METER
     Dates: start: 20201023
  5. COPANLISIB [Suspect]
     Active Substance: COPANLISIB
     Indication: Marginal zone lymphoma
     Dosage: 60 MILLIGRAM, CYCLE (ON DAYS 1, 8, AND 15 OF EVERY CYCLE)
     Route: 042
     Dates: start: 20200820
  6. COPANLISIB [Suspect]
     Active Substance: COPANLISIB
     Dosage: 45 MILLIGRAM (REDUCED TO 45 MG)
     Route: 042
     Dates: start: 20200917, end: 20200917
  7. COPANLISIB [Suspect]
     Active Substance: COPANLISIB
     Dosage: UNK (LAST DOSE PRIOR EVENT ONSET)
     Route: 065
     Dates: start: 20201001, end: 20201001
  8. COPANLISIB [Suspect]
     Active Substance: COPANLISIB
     Dosage: 45 MILLIGRAM
     Dates: start: 20201023

REACTIONS (2)
  - Diarrhoea [Recovered/Resolved]
  - Off label use [Unknown]

NARRATIVE: CASE EVENT DATE: 20201008
